FAERS Safety Report 9345841 (Version 4)
Quarter: 2013Q3

REPORT INFORMATION
  Report Type: Spontaneous
  Country: US (occurrence: US)
  Receive Date: 20130613
  Receipt Date: 20130701
  Transmission Date: 20140515
  Serious: Yes (Other)
  Sender: FDA-Public Use
  Company Number: US-PFIZER INC-2013177059

PATIENT
  Age: 80 Year
  Sex: Male
  Weight: 74.83 kg

DRUGS (1)
  1. LYRICA [Suspect]
     Indication: NEURALGIA
     Dosage: 50 MG, 3X/DAY
     Dates: start: 2008

REACTIONS (7)
  - Apparent death [Unknown]
  - Oedema peripheral [Not Recovered/Not Resolved]
  - Hot flush [Unknown]
  - Diarrhoea [Unknown]
  - Abdominal discomfort [Unknown]
  - Decreased appetite [Unknown]
  - Dry mouth [Unknown]
